FAERS Safety Report 25349896 (Version 3)
Quarter: 2025Q3

REPORT INFORMATION
  Report Type: Spontaneous
  Country: US (occurrence: US)
  Receive Date: 20250523
  Receipt Date: 20250802
  Transmission Date: 20251020
  Serious: Yes (Other)
  Sender: ALEXION PHARMACEUTICALS
  Company Number: US-AstraZeneca-CH-00872613A

PATIENT
  Sex: Male

DRUGS (14)
  1. FARXIGA [Suspect]
     Active Substance: DAPAGLIFLOZIN PROPANEDIOL
     Indication: Product used for unknown indication
     Route: 065
  2. SEROQUEL [Suspect]
     Active Substance: QUETIAPINE FUMARATE
     Route: 065
  3. CARBAMAZEPINE [Concomitant]
     Active Substance: CARBAMAZEPINE
     Route: 065
  4. EMPAGLIFLOZIN [Concomitant]
     Active Substance: EMPAGLIFLOZIN
     Route: 065
  5. PAROXETINE HYDROCHLORIDE [Concomitant]
     Active Substance: PAROXETINE HYDROCHLORIDE
     Route: 065
  6. PROZAC [Concomitant]
     Active Substance: FLUOXETINE HYDROCHLORIDE
     Route: 065
  7. FLUVOXAMINE MALEATE [Concomitant]
     Active Substance: FLUVOXAMINE MALEATE
     Route: 065
  8. Oxetine [Concomitant]
     Route: 065
  9. SEROTONIN [Concomitant]
     Active Substance: SEROTONIN
     Route: 065
  10. TRAZODONE HYDROCHLORIDE [Concomitant]
     Active Substance: TRAZODONE HYDROCHLORIDE
     Route: 065
  11. HALDOL [Concomitant]
     Active Substance: HALOPERIDOL
     Route: 065
  12. TOPAMAX [Concomitant]
     Active Substance: TOPIRAMATE
     Route: 065
  13. RITALIN [Concomitant]
     Active Substance: METHYLPHENIDATE HYDROCHLORIDE
     Route: 065
  14. DAPAGLIFLOZIN [Concomitant]
     Active Substance: DAPAGLIFLOZIN
     Route: 065

REACTIONS (23)
  - Epilepsy [Unknown]
  - Suicidal ideation [Unknown]
  - Anhedonia [Unknown]
  - Back pain [Unknown]
  - Fatigue [Unknown]
  - Hunger [Unknown]
  - Hypersensitivity [Unknown]
  - Insomnia [Unknown]
  - Arthralgia [Unknown]
  - Migraine with aura [Unknown]
  - Hypoaesthesia [Unknown]
  - Hypothalamic enlargement [Unknown]
  - Weight increased [Unknown]
  - Depression [Unknown]
  - Polydipsia [Unknown]
  - Obsessive-compulsive disorder [Unknown]
  - Hypersomnia [Unknown]
  - Polyuria [Unknown]
  - Neuropsychiatric syndrome [Unknown]
  - Affective disorder [Unknown]
  - Nervous system disorder [Unknown]
  - Metabolic disorder [Unknown]
  - Hypothalamo-pituitary disorder [Unknown]
